FAERS Safety Report 6055764-0 (Version None)
Quarter: 2009Q1

REPORT INFORMATION
  Report Type: 
  Country: None (occurrence: None)
  Receive Date: 20090128
  Receipt Date: 20090127
  Transmission Date: 20090719
  Serious: Yes (Hospitalization)
  Sender: FDA-Public Use
  Company Number: FR-WYE-G03008409

PATIENT
  Sex: Female

DRUGS (12)
  1. ADVIL LIQUI-GELS [Suspect]
     Route: 048
     Dates: start: 20081001, end: 20081219
  2. LASILIX [Suspect]
     Route: 048
     Dates: start: 20050101, end: 20081219
  3. CEBUTID [Suspect]
     Route: 048
     Dates: start: 20050101, end: 20081219
  4. ALDACTONE [Suspect]
     Route: 048
     Dates: start: 20050101, end: 20081219
  5. NEXIUM [Concomitant]
     Route: 048
     Dates: start: 20050101, end: 20081219
  6. PERIDYS [Concomitant]
     Dosage: UNKNOWN
     Route: 048
     Dates: start: 20080901, end: 20081219
  7. EFFERALGAN [Concomitant]
     Dosage: 3 G TOTAL DAILY
     Route: 048
     Dates: start: 20081001, end: 20081219
  8. SPASFON [Concomitant]
     Dosage: UNKNOWN
     Route: 048
     Dates: start: 20081001, end: 20081219
  9. HEMIGOXINE NATIVELLE [Suspect]
     Dosage: UNKNOWN
     Route: 048
     Dates: start: 20050101, end: 20081201
  10. HEMIGOXINE NATIVELLE [Suspect]
     Dosage: OVERDOSE AMOUNT : UNSPECIFIED
     Route: 048
     Dates: start: 20081201, end: 20081219
  11. KENZEN [Suspect]
     Route: 048
     Dates: start: 20050101, end: 20081219
  12. COLCHIMAX [Concomitant]
     Route: 048
     Dates: start: 20071001, end: 20081219

REACTIONS (4)
  - ASTHENIA [None]
  - HYPERKALAEMIA [None]
  - OVERDOSE [None]
  - RENAL FAILURE [None]
